FAERS Safety Report 24009461 (Version 1)
Quarter: 2024Q2

REPORT INFORMATION
  Report Type: Spontaneous
  Country: US (occurrence: None)
  Receive Date: 20240624
  Receipt Date: 20240624
  Transmission Date: 20240716
  Serious: Yes (Other)
  Sender: FDA-Public Use
  Company Number: None

PATIENT
  Age: 56 Year
  Sex: Male

DRUGS (1)
  1. MAVYRET [Suspect]
     Active Substance: GLECAPREVIR\PIBRENTASVIR
     Indication: Hepatitis C
     Dosage: OTHER QUANTITY : 300-120MG;?FREQUENCY : DAILY;?

REACTIONS (8)
  - Head discomfort [None]
  - Eye pain [None]
  - Swelling [None]
  - Mass [None]
  - Pain [None]
  - Haemorrhage [None]
  - Nonspecific reaction [None]
  - Fatigue [None]
